FAERS Safety Report 9048910 (Version 1)
Quarter: 2013Q1

REPORT INFORMATION
  Report Type: Spontaneous
  Country: US (occurrence: None)
  Receive Date: 20130116
  Receipt Date: 20130116
  Transmission Date: 20140127
  Serious: Yes (Death)
  Sender: FDA-Public Use
  Company Number: UTC-027819

PATIENT
  Age: 70 Year
  Sex: Female
  Weight: 64.54 kg

DRUGS (3)
  1. TYVASO [Suspect]
     Indication: PULMONARY ARTERIAL HYPERTENSION
     Route: 055
     Dates: start: 20121207
  2. REVATIO(SILDENAFIL CITRATE) (UNKNOWN) [Concomitant]
  3. COUMADIN(WARFARIN SODIUM) (UNKNOWN) [Concomitant]

REACTIONS (1)
  - Right ventricular failure [None]
